FAERS Safety Report 8722002 (Version 3)
Quarter: 2012Q4

REPORT INFORMATION
  Report Type: 
  Country: US (occurrence: US)
  Receive Date: 20120814
  Receipt Date: 20121126
  Transmission Date: 20130627
  Serious: Yes (Other)
  Sender: FDA-Public Use
  Company Number: US-BAYER-2012-079169

PATIENT
  Age: 33 Year
  Sex: Female
  Weight: 56.69 kg

DRUGS (8)
  1. YAZ [Suspect]
     Dosage: UNK
     Dates: start: 200401, end: 20100725
  2. YASMIN [Suspect]
     Dosage: UNK
     Dates: start: 200401, end: 201007
  3. GABAPENTIN [Concomitant]
     Dosage: 100 mg, TID
     Dates: start: 20100422
  4. FAMCICLOVIR [Concomitant]
     Dosage: 500 mg, TID for 7 days
     Dates: start: 20100422
  5. PROPOXYPHENE NAPSYLATE [Concomitant]
     Dosage: 100-650 mg five days
     Dates: start: 20100422
  6. CIPRODEX [Concomitant]
     Dosage: 0.3-0.1% 5 days
     Dates: start: 20100610
  7. MOTRIN [Concomitant]
  8. FLEXERIL [Concomitant]

REACTIONS (4)
  - Deep vein thrombosis [None]
  - Pain [None]
  - Pain [None]
  - Injury [None]
